FAERS Safety Report 11022271 (Version 1)
Quarter: 2015Q2

REPORT INFORMATION
  Report Type: Spontaneous
  Country: LB (occurrence: LB)
  Receive Date: 20150413
  Receipt Date: 20150413
  Transmission Date: 20150821
  Serious: Yes (Other)
  Sender: FDA-Public Use
  Company Number: LB-MYLANLABS-2015M1012116

PATIENT

DRUGS (3)
  1. TERBINAFINE [Concomitant]
     Active Substance: TERBINAFINE
     Indication: TINEA VERSICOLOUR
     Dosage: TWICE DAILY FOR 2 WEEKS
  2. KETOCONAZOLE. [Concomitant]
     Active Substance: KETOCONAZOLE
     Indication: TINEA VERSICOLOUR
     Dosage: 200 MG/DAY
  3. FLUCONAZOLE. [Suspect]
     Active Substance: FLUCONAZOLE
     Indication: TINEA VERSICOLOUR
     Dosage: 300 MG/WEEK
     Route: 048

REACTIONS (1)
  - Pathogen resistance [Unknown]
